FAERS Safety Report 9286206 (Version 1)
Quarter: 2013Q2

REPORT INFORMATION
  Report Type: Spontaneous
  Country: US (occurrence: US)
  Receive Date: 20130513
  Receipt Date: 20130513
  Transmission Date: 20140414
  Serious: Yes (Hospitalization)
  Sender: FDA-Public Use
  Company Number: US-GLAXOSMITHKLINE-A1022508A

PATIENT
  Age: 50 Year
  Sex: Female

DRUGS (19)
  1. COREG [Suspect]
     Indication: HYPERTENSION
     Dosage: 6.25MG TWICE PER DAY
     Route: 048
     Dates: start: 201206
  2. CARVEDILOL [Suspect]
     Indication: HYPERTENSION
     Dosage: 6.25MG TWICE PER DAY
     Route: 048
  3. BLOOD PRESSURE MEDICATION [Suspect]
  4. ASPIRIN [Concomitant]
  5. DEXILANT [Concomitant]
  6. LIVALO [Concomitant]
  7. ZETIA [Concomitant]
  8. NIASPAN [Concomitant]
  9. EFFIENT [Concomitant]
  10. WELCHOL [Concomitant]
  11. TYLENOL [Concomitant]
  12. TUMS [Concomitant]
  13. ZANTAC [Concomitant]
  14. MELATONIN [Concomitant]
  15. VITAMIN D3 [Concomitant]
  16. CO Q 10 [Concomitant]
  17. KRILL OIL [Concomitant]
  18. MUCINEX [Concomitant]
  19. UNSPECIFIED MEDICATION [Concomitant]

REACTIONS (3)
  - Blood pressure decreased [Not Recovered/Not Resolved]
  - Blood pressure fluctuation [Not Recovered/Not Resolved]
  - Fatigue [Not Recovered/Not Resolved]
